FAERS Safety Report 10504546 (Version 1)
Quarter: 2014Q4

REPORT INFORMATION
  Report Type: Spontaneous
  Country: US (occurrence: None)
  Receive Date: 20141007
  Receipt Date: 20141007
  Transmission Date: 20150528
  Serious: No
  Sender: FDA-Public Use
  Company Number: None

PATIENT
  Age: 46 Year
  Sex: Female
  Weight: 79.38 kg

DRUGS (1)
  1. PROMETHAZINE HCL 25 SANDOZ [Suspect]
     Active Substance: PROMETHAZINE HYDROCHLORIDE
     Indication: CLOSTRIDIUM DIFFICILE INFECTION
     Dosage: 1 PILL
     Route: 048
     Dates: start: 20140930, end: 20141005

REACTIONS (1)
  - Nightmare [None]

NARRATIVE: CASE EVENT DATE: 20141003
